FAERS Safety Report 4947411-3 (Version None)
Quarter: 2006Q1

REPORT INFORMATION
  Report Type: 
  Country: None (occurrence: None)
  Receive Date: 20060317
  Receipt Date: 20060308
  Transmission Date: 20060701
  Serious: Yes (Hospitalization)
  Sender: FDA-Public Use
  Company Number: US-MERCK-0603USA01423

PATIENT
  Sex: Female

DRUGS (5)
  1. COZAAR [Suspect]
     Indication: BLOOD PRESSURE INCREASED
     Route: 048
     Dates: start: 20041001, end: 20041001
  2. COZAAR [Suspect]
     Route: 048
     Dates: start: 20041001, end: 20041001
  3. COZAAR [Suspect]
     Route: 048
     Dates: start: 20041001, end: 20041001
  4. COZAAR [Suspect]
     Route: 048
     Dates: start: 20041001, end: 20041001
  5. CLONIDINE [Concomitant]
     Route: 065
     Dates: start: 20041001

REACTIONS (4)
  - BLOOD PRESSURE INCREASED [None]
  - CEREBROVASCULAR ACCIDENT [None]
  - DRUG INEFFECTIVE [None]
  - PHARMACEUTICAL PRODUCT COMPLAINT [None]
